FAERS Safety Report 25771674 (Version 1)
Quarter: 2025Q3

REPORT INFORMATION
  Report Type: Spontaneous
  Country: US (occurrence: US)
  Receive Date: 20250908
  Receipt Date: 20250908
  Transmission Date: 20251021
  Serious: No
  Sender: DOMPE FARMACEUTICI
  Company Number: US-FARMAPROD-202505-1556

PATIENT
  Sex: Female
  Weight: 60.33 kg

DRUGS (21)
  1. OXERVATE [Suspect]
     Active Substance: CENEGERMIN-BKBJ
     Indication: Neurotrophic keratopathy
     Route: 047
     Dates: start: 20250401
  2. OFLOXACIN [Concomitant]
     Active Substance: OFLOXACIN
  3. PREDNISOLONE ACETATE [Concomitant]
     Active Substance: PREDNISOLONE ACETATE
  4. ASPIRIN [Concomitant]
     Active Substance: ASPIRIN
  5. EPIPEN [Concomitant]
     Active Substance: EPINEPHRINE
  6. SYNTHROID [Concomitant]
     Active Substance: LEVOTHYROXINE SODIUM
  7. VITAMIN D3 [Concomitant]
     Active Substance: CHOLECALCIFEROL
  8. VITAMIN D3 [Concomitant]
     Active Substance: CHOLECALCIFEROL
  9. FA-8 [Concomitant]
  10. ACYCLOVIR [Concomitant]
     Active Substance: ACYCLOVIR
  11. HYDROCORTISONE [Concomitant]
     Active Substance: HYDROCORTISONE
  12. B12 ACTIVE [Concomitant]
  13. VITAMINS [Concomitant]
     Active Substance: VITAMINS
  14. SYSTANE (HYPROMELLOSE 2910 (4000 MPA.S)) [Concomitant]
     Active Substance: HYPROMELLOSE 2910 (4000 MPA.S)
  15. ELIQUIS [Concomitant]
     Active Substance: APIXABAN
  16. ELIQUIS [Concomitant]
     Active Substance: APIXABAN
  17. TRAVOPROST [Concomitant]
     Active Substance: TRAVOPROST
  18. PRAVASTATIN SODIUM [Concomitant]
     Active Substance: PRAVASTATIN SODIUM
  19. PRAVASTATIN SODIUM [Concomitant]
     Active Substance: PRAVASTATIN SODIUM
  20. KEPPRA [Concomitant]
     Active Substance: LEVETIRACETAM
  21. KEPPRA [Concomitant]
     Active Substance: LEVETIRACETAM

REACTIONS (2)
  - Swelling of eyelid [Unknown]
  - Intraocular pressure increased [Unknown]
